FAERS Safety Report 14227096 (Version 7)
Quarter: 2019Q2

REPORT INFORMATION
  Report Type: Spontaneous
  Country: NL (occurrence: NL)
  Receive Date: 20171127
  Receipt Date: 20190409
  Transmission Date: 20190711
  Serious: Yes (Hospitalization, Other)
  Sender: FDA-Public Use
  Company Number: NL-PFIZER INC-2015275540

PATIENT
  Age: 51 Year
  Sex: Male

DRUGS (30)
  1. SOMAVERT [Suspect]
     Active Substance: PEGVISOMANT
     Dosage: 80 MG, 1X/WEEK
     Route: 058
     Dates: start: 20160127
  2. PASIREOTIDE. [Concomitant]
     Active Substance: PASIREOTIDE
     Dosage: UNK
  3. SOMAVERT [Suspect]
     Active Substance: PEGVISOMANT
     Dosage: 120 MG, WEEKLY (40MG ON WEDNESDAY, 80MG ON SATURDAY)
     Route: 058
     Dates: start: 20161206
  4. ACETYLSALICYLZUUR [Concomitant]
     Active Substance: ASPIRIN
     Dosage: 80 MG, 1X/DAY
     Route: 048
  5. HYDROCORTISON [Concomitant]
     Active Substance: HYDROCORTISONE
     Dosage: 5 MG, UNK
     Route: 048
  6. LEVOTHYROXINE. [Concomitant]
     Active Substance: LEVOTHYROXINE
     Dosage: 137 UG, 1X/DAY
     Route: 048
  7. SOMAVERT [Suspect]
     Active Substance: PEGVISOMANT
     Dosage: 140 MG, 2X/WEEK
     Route: 058
     Dates: start: 20121030
  8. SOMAVERT [Suspect]
     Active Substance: PEGVISOMANT
     Dosage: 40 MG, 1X/DAY
     Route: 058
     Dates: start: 20141106
  9. SOMAVERT [Suspect]
     Active Substance: PEGVISOMANT
     Dosage: 60 MG, 3X/ WEEK
  10. DICLOFENAC NATRIUM MICRO LABS [Concomitant]
     Active Substance: DICLOFENAC SODIUM
     Dosage: 50 MG, 3X/DAY
     Route: 048
  11. VILDAGLIPTINE [Concomitant]
     Active Substance: VILDAGLIPTIN
     Dosage: 50 MG, 1X/DAY
     Route: 048
  12. SOMAVERT [Suspect]
     Active Substance: PEGVISOMANT
     Dosage: 60 MG, 1X/DAY
     Route: 058
     Dates: start: 20130218
  13. SOMAVERT [Suspect]
     Active Substance: PEGVISOMANT
     Dosage: 60 MG, 2X/WEEK
     Dates: start: 20180319
  14. CARVEDILOL. [Concomitant]
     Active Substance: CARVEDILOL
     Dosage: 6.25 MG, 2X/DAY
     Route: 048
  15. OXYCODON [Concomitant]
     Active Substance: OXYCODONE
     Dosage: 10 MG, UNK
     Route: 048
  16. PANTOPRAZOL [Concomitant]
     Active Substance: PANTOPRAZOLE SODIUM
     Dosage: 40 MG, 2X/DAY
     Route: 048
  17. TESTOSTERON [Concomitant]
     Active Substance: TESTOSTERONE
     Dosage: 250 MG/ML, UNK
  18. SOMAVERT [Suspect]
     Active Substance: PEGVISOMANT
     Dosage: UNK
     Route: 058
     Dates: start: 20080627
  19. LOSARTAN. [Concomitant]
     Active Substance: LOSARTAN
     Dosage: 100 MG, 1X/DAY
     Route: 048
  20. MACROGOL [Concomitant]
     Active Substance: POLYETHYLENE GLYCOLS
     Dosage: UNK
     Route: 048
  21. SOMAVERT [Suspect]
     Active Substance: PEGVISOMANT
     Indication: ACROMEGALY
     Dosage: UNK
     Route: 058
     Dates: start: 20080627
  22. SOMAVERT [Suspect]
     Active Substance: PEGVISOMANT
     Dosage: UNK
     Route: 058
     Dates: start: 20111205
  23. SOMAVERT [Suspect]
     Active Substance: PEGVISOMANT
     Dosage: 45 MG, 1X/DAY
     Route: 058
     Dates: start: 20120718
  24. SOMAVERT [Suspect]
     Active Substance: PEGVISOMANT
     Dosage: 120 MG, WEEKLY
     Route: 058
     Dates: start: 20121030
  25. CALCIUMCARBONAAT [Concomitant]
     Dosage: 1000 MG, 1X/DAY
     Route: 048
  26. OMEPRAZOL [Concomitant]
     Active Substance: OMEPRAZOLE
     Dosage: 40 MG, 2X/DAY
     Route: 048
  27. EZETIMIBE. [Concomitant]
     Active Substance: EZETIMIBE
     Dosage: 10 MG, 1X/DAY
     Route: 048
  28. METFORMINE [Concomitant]
     Active Substance: METFORMIN HYDROCHLORIDE
     Dosage: 850 MG, 3X/DAY
     Route: 048
  29. AMLODIPINE [Concomitant]
     Active Substance: AMLODIPINE BESYLATE
     Dosage: 10 MG, 1X/DAY
  30. CLOBETASOL [Concomitant]
     Active Substance: CLOBETASOL
     Dosage: UNK

REACTIONS (5)
  - Cholelithiasis [Not Recovered/Not Resolved]
  - Cholecystitis infective [Not Recovered/Not Resolved]
  - Bacteraemia [Not Recovered/Not Resolved]
  - Product prescribing error [Unknown]
  - Product use issue [Unknown]

NARRATIVE: CASE EVENT DATE: 20120718
